FAERS Safety Report 18516194 (Version 1)
Quarter: 2020Q4

REPORT INFORMATION
  Report Type: Spontaneous
  Country: US (occurrence: US)
  Receive Date: 20201117
  Receipt Date: 20201117
  Transmission Date: 20210114
  Serious: No
  Sender: FDA-Public Use
  Company Number: None

PATIENT
  Age: 64 Year
  Sex: Female

DRUGS (8)
  1. BENZTROPINE MESYLATE. [Concomitant]
     Active Substance: BENZTROPINE MESYLATE
  2. VOSEVI [Suspect]
     Active Substance: SOFOSBUVIR\VELPATASVIR\VOXILAPREVIR
     Indication: CHRONIC HEPATITIS C
     Dosage: ?          OTHER DOSE:400-100-100 MG;?
     Route: 048
     Dates: start: 20201021
  3. ATOMOXETINE HYDROCHLORIDE. [Concomitant]
     Active Substance: ATOMOXETINE HYDROCHLORIDE
  4. SENNA [Concomitant]
     Active Substance: SENNA LEAF\SENNOSIDES\SENNOSIDES A AND B
  5. MOBIC [Concomitant]
     Active Substance: MELOXICAM
  6. TRAZODONE HYDROCHLORIDE. [Concomitant]
     Active Substance: TRAZODONE HYDROCHLORIDE
  7. BACLOFEN. [Concomitant]
     Active Substance: BACLOFEN
  8. OMEPRAZOLE. [Concomitant]
     Active Substance: OMEPRAZOLE

REACTIONS (1)
  - Cerebrovascular accident [None]

NARRATIVE: CASE EVENT DATE: 20201116
